FAERS Safety Report 18647079 (Version 6)
Quarter: 2022Q1

REPORT INFORMATION
  Report Type: Report from Study
  Country: CA (occurrence: CA)
  Receive Date: 20201221
  Receipt Date: 20220203
  Transmission Date: 20220423
  Serious: Yes (Other)
  Sender: FDA-Public Use
  Company Number: CA-JNJFOC-20201228886

PATIENT
  Age: 70 Year
  Sex: Male
  Weight: 102.8 kg

DRUGS (2)
  1. REMICADE [Suspect]
     Active Substance: INFLIXIMAB
     Indication: Colitis ulcerative
     Dosage: ON 22-APR-2021 PATIENT WAS RECEIVED LAST INFUSION.
     Route: 042
  2. REMICADE [Suspect]
     Active Substance: INFLIXIMAB
     Dosage: ON 22-APR-2021 PATIENT WAS RECEIVED LAST INFUSION.
     Route: 042

REACTIONS (10)
  - Gastrointestinal carcinoma [Unknown]
  - Nodule [Unknown]
  - Rectal cancer [Unknown]
  - Hepatic cyst [Unknown]
  - Fall [Unknown]
  - Tooth infection [Recovering/Resolving]
  - Dizziness [Recovering/Resolving]
  - Tooth extraction [Recovered/Resolved]
  - Dyspnoea [Not Recovered/Not Resolved]
  - Fatigue [Unknown]

NARRATIVE: CASE EVENT DATE: 20201201
